FAERS Safety Report 17297055 (Version 1)
Quarter: 2020Q1

REPORT INFORMATION
  Report Type: Spontaneous
  Country: CH (occurrence: CH)
  Receive Date: 20200122
  Receipt Date: 20200122
  Transmission Date: 20200409
  Serious: Yes (Other)
  Sender: FDA-Public Use
  Company Number: CH-TEVA-2020-CH-1171324

PATIENT
  Sex: Female
  Weight: 66 kg

DRUGS (2)
  1. CANDESARTAN 8MG [Suspect]
     Active Substance: CANDESARTAN CILEXETIL
     Dosage: ONCE
     Dates: start: 20160101
  2. OLFEN PATCH [Suspect]
     Active Substance: DICLOFENAC SODIUM
     Indication: BACK PAIN
     Dosage: ONE TIME APPLICATION
     Route: 065
     Dates: start: 20191111, end: 20200110

REACTIONS (7)
  - Hypersensitivity [Unknown]
  - Dyspnoea [Recovering/Resolving]
  - Anaphylactic reaction [Unknown]
  - Swelling face [Recovering/Resolving]
  - Depression [Recovering/Resolving]
  - Malaise [Unknown]
  - Headache [Recovering/Resolving]

NARRATIVE: CASE EVENT DATE: 20191111
